FAERS Safety Report 6679974-4 (Version None)
Quarter: 2010Q2

REPORT INFORMATION
  Report Type: 
  Country: None (occurrence: None)
  Receive Date: 20100413
  Receipt Date: 20100331
  Transmission Date: 20101027
  Serious: Yes (Other)
  Sender: FDA-Public Use
  Company Number: US-WYE-H14496510

PATIENT
  Sex: Female
  Weight: 63.56 kg

DRUGS (1)
  1. PRISTIQ [Suspect]
     Indication: ANXIETY
     Route: 048
     Dates: start: 20100321, end: 20100329

REACTIONS (8)
  - ANXIETY [None]
  - CONDITION AGGRAVATED [None]
  - CRYING [None]
  - DRUG WITHDRAWAL SYNDROME [None]
  - EMOTIONAL DISORDER [None]
  - HEADACHE [None]
  - INTENTIONAL DRUG MISUSE [None]
  - SUICIDAL IDEATION [None]
